FAERS Safety Report 8348294-4 (Version None)
Quarter: 2012Q2

REPORT INFORMATION
  Report Type: 
  Country: None (occurrence: None)
  Receive Date: 20120507
  Receipt Date: 20120423
  Transmission Date: 20120825
  Serious: Yes (Hospitalization)
  Sender: FDA-Public Use
  Company Number: 2012MA005458

PATIENT
  Age: 59 Year
  Sex: Male

DRUGS (3)
  1. TANAKAN [Concomitant]
  2. ASPIRIN [Concomitant]
  3. RANITIDINE [Suspect]
     Indication: ABDOMINAL PAIN UPPER
     Dosage: 150 MG;PO
     Route: 048
     Dates: start: 20120411

REACTIONS (4)
  - TONGUE OEDEMA [None]
  - FEAR [None]
  - DYSPHAGIA [None]
  - SPEECH DISORDER [None]
